FAERS Safety Report 11053636 (Version 3)
Quarter: 2015Q2

REPORT INFORMATION
  Report Type: Report from Study
  Country: US (occurrence: US)
  Receive Date: 20150421
  Receipt Date: 20150617
  Transmission Date: 20150821
  Serious: Yes (Hospitalization, Other)
  Sender: FDA-Public Use
  Company Number: US-ALEXION PHARMACEUTICALS INC.-A201501327

PATIENT

DRUGS (1)
  1. SOLIRIS [Suspect]
     Active Substance: ECULIZUMAB
     Indication: HAEMOLYTIC URAEMIC SYNDROME
     Dosage: UNK
     Route: 042

REACTIONS (10)
  - Arteriovenous fistula thrombosis [Recovered/Resolved]
  - Haemolysis [Not Recovered/Not Resolved]
  - Renal impairment [Unknown]
  - Arteriovenous fistula site complication [Not Recovered/Not Resolved]
  - Fluid retention [Recovering/Resolving]
  - Therapeutic response decreased [Unknown]
  - Thrombocytopenia [Not Recovered/Not Resolved]
  - Malaise [Not Recovered/Not Resolved]
  - Depression [Not Recovered/Not Resolved]
  - Anaemia [Not Recovered/Not Resolved]

NARRATIVE: CASE EVENT DATE: 20150410
